FAERS Safety Report 4937129-5 (Version None)
Quarter: 2006Q1

REPORT INFORMATION
  Report Type: 
  Country: None (occurrence: None)
  Receive Date: 20060307
  Receipt Date: 20060307
  Transmission Date: 20060701
  Serious: No
  Sender: FDA-Public Use
  Company Number: None

PATIENT
  Sex: Female
  Weight: 45.3597 kg

DRUGS (1)
  1. FELODIPINE [Suspect]
     Indication: PULMONARY HYPERTENSION
     Dosage: 5 MG DAILY PO
     Route: 048
     Dates: start: 20060201, end: 20060208

REACTIONS (2)
  - FLUSHING [None]
  - HEADACHE [None]
